FAERS Safety Report 10383006 (Version 3)
Quarter: 2019Q2

REPORT INFORMATION
  Report Type: Report from Study
  Country: US (occurrence: US)
  Receive Date: 20140813
  Receipt Date: 20190509
  Transmission Date: 20190711
  Serious: No
  Sender: FDA-Public Use
  Company Number: US-SA-2014SA083173

PATIENT
  Age: 42 Year
  Sex: Female
  Weight: 49.89 kg

DRUGS (2)
  1. PREGABALIN. [Concomitant]
     Active Substance: PREGABALIN
     Indication: PAIN
     Dosage: 1 DF,TID
     Route: 048
     Dates: start: 20140409
  2. AGALSIDASE BETA [Suspect]
     Active Substance: AGALSIDASE BETA
     Indication: FABRY^S DISEASE
     Dosage: 1 MG/KG, QOW
     Route: 041
     Dates: start: 20081201

REACTIONS (3)
  - Disease progression [Not Recovered/Not Resolved]
  - Fatigue [Recovering/Resolving]
  - Therapeutic response decreased [Unknown]

NARRATIVE: CASE EVENT DATE: 20140408
